FAERS Safety Report 4738382-3 (Version None)
Quarter: 2005Q3

REPORT INFORMATION
  Report Type: 
  Country: None (occurrence: None)
  Receive Date: 20050809
  Receipt Date: 20050805
  Transmission Date: 20060218
  Serious: Yes (Hospitalization)
  Sender: FDA-Public Use
  Company Number: US-GLAXOSMITHKLINE-A0569122A

PATIENT
  Sex: Male

DRUGS (4)
  1. LAMICTAL [Suspect]
     Indication: BIPOLAR DISORDER
     Route: 048
     Dates: start: 20050401, end: 20050725
  2. TOPAMAX [Concomitant]
  3. LASIX [Concomitant]
  4. PROZAC [Concomitant]

REACTIONS (7)
  - AMNESIA [None]
  - ANOREXIA [None]
  - DEHYDRATION [None]
  - DYSPHEMIA [None]
  - LOSS OF CONSCIOUSNESS [None]
  - MEMORY IMPAIRMENT [None]
  - WEIGHT DECREASED [None]
